FAERS Safety Report 6795675-6 (Version None)
Quarter: 2010Q2

REPORT INFORMATION
  Report Type: 
  Country: None (occurrence: None)
  Receive Date: 20100625
  Receipt Date: 20100614
  Transmission Date: 20101027
  Serious: Yes (Hospitalization)
  Sender: FDA-Public Use
  Company Number: FR-ELI_LILLY_AND_COMPANY-FR201004007943

PATIENT
  Sex: Female

DRUGS (3)
  1. PROZAC [Suspect]
     Dosage: 40 MG, DAILY (1/D)
     Route: 048
  2. PROZAC [Suspect]
     Dosage: 20 MG, DAILY (1/D)
  3. DOLI RHUME [Concomitant]
     Dosage: UNK, UNK
     Route: 048

REACTIONS (3)
  - DRUG INTERACTION [None]
  - ENCEPHALOPATHY [None]
  - MYOCLONUS [None]
